FAERS Safety Report 6457113-2 (Version None)
Quarter: 2009Q4

REPORT INFORMATION
  Report Type: 
  Country: None (occurrence: None)
  Receive Date: 20091125
  Receipt Date: 20091117
  Transmission Date: 20100525
  Serious: Yes (Hospitalization)
  Sender: FDA-Public Use
  Company Number: B0601278A

PATIENT
  Sex: Female
  Weight: 76 kg

DRUGS (3)
  1. LAPATINIB [Suspect]
     Dosage: 1250MG PER DAY
     Dates: start: 20091013, end: 20091026
  2. VINORELBINE [Suspect]
     Dates: end: 20091026
  3. DILTIAZEM [Concomitant]
     Indication: TACHYCARDIA
     Route: 048
     Dates: start: 20070101

REACTIONS (6)
  - DIARRHOEA [None]
  - FEBRILE NEUTROPENIA [None]
  - HYPOKALAEMIA [None]
  - MUCOSAL INFLAMMATION [None]
  - PYREXIA [None]
  - STOMATITIS [None]
